FAERS Safety Report 6131462-X (Version None)
Quarter: 2009Q1

REPORT INFORMATION
  Report Type: 
  Country: None (occurrence: None)
  Receive Date: 20090325
  Receipt Date: 20080813
  Transmission Date: 20090719
  Serious: Yes (Hospitalization)
  Sender: FDA-Public Use
  Company Number: US-BRISTOL-MYERS SQUIBB COMPANY-14279780

PATIENT
  Age: 54 Year
  Sex: Male

DRUGS (5)
  1. ERBITUX [Suspect]
     Indication: HEAD AND NECK CANCER
     Dosage: TEST DOSE
     Route: 042
     Dates: start: 20080702
  2. STEROIDS [Concomitant]
     Indication: PREMEDICATION
  3. TYLENOL [Concomitant]
     Indication: PREMEDICATION
  4. BENADRYL [Concomitant]
     Indication: PREMEDICATION
  5. ALBUTEROL [Concomitant]
     Indication: PREMEDICATION

REACTIONS (3)
  - LIP SWELLING [None]
  - RASH [None]
  - SWOLLEN TONGUE [None]
